FAERS Safety Report 11741597 (Version 4)
Quarter: 2016Q1

REPORT INFORMATION
  Report Type: Spontaneous
  Country: TR (occurrence: TR)
  Receive Date: 20151116
  Receipt Date: 20160209
  Transmission Date: 20160525
  Serious: Yes (Death, Other)
  Sender: FDA-Public Use
  Company Number: TR-AMGEN-TURSP2015120130

PATIENT
  Age: 11 Year
  Sex: Male
  Weight: 64 kg

DRUGS (5)
  1. TARGOCID [Concomitant]
     Active Substance: TEICOPLANIN
     Indication: FEBRILE NEUTROPENIA
     Dosage: 10 MG/KG, QD
     Route: 042
     Dates: start: 20151026, end: 20151110
  2. BLINCYTO [Suspect]
     Active Substance: BLINATUMOMAB
     Indication: ACUTE LYMPHOCYTIC LEUKAEMIA
     Dosage: 5 MUG, AS CONTINUOUS INFUSION  QD
     Route: 042
     Dates: start: 20151031, end: 20151129
  3. AMBISOME [Concomitant]
     Active Substance: AMPHOTERICIN B
     Indication: FEBRILE NEUTROPENIA
     Dosage: 3 MG/KG, QD
     Route: 042
     Dates: start: 20151026
  4. MERONEM [Concomitant]
     Active Substance: MEROPENEM
     Indication: FEBRILE NEUTROPENIA
     Dosage: 80 MG/KG, QD
     Route: 042
     Dates: start: 20151026
  5. ACICLOVIR [Concomitant]
     Active Substance: ACYCLOVIR
     Indication: HERPES ZOSTER
     Dosage: 45 MG/KG, QD
     Route: 042
     Dates: start: 20151026

REACTIONS (4)
  - Papilloedema [Recovered/Resolved]
  - Disease progression [Fatal]
  - Off label use [Unknown]
  - Pyrexia [Unknown]

NARRATIVE: CASE EVENT DATE: 20151106
